FAERS Safety Report 17938199 (Version 5)
Quarter: 2021Q2

REPORT INFORMATION
  Report Type: Report from Study
  Country: US (occurrence: US)
  Receive Date: 20200624
  Receipt Date: 20210605
  Transmission Date: 20210717
  Serious: Yes (Other)
  Sender: FDA-Public Use
  Company Number: US-SHIRE-US202020535

PATIENT
  Age: 58 Year
  Sex: Female

DRUGS (3)
  1. PARATHYROID HORMONE [Suspect]
     Active Substance: PARATHYROID HORMONE
     Indication: HYPOPARATHYROIDISM
     Dosage: 75 MICROGRAM, QD
     Route: 058
  2. PARATHYROID HORMONE [Suspect]
     Active Substance: PARATHYROID HORMONE
     Indication: HYPOPARATHYROIDISM
     Dosage: 75 MICROGRAM, QD
     Route: 058
  3. PARATHYROID HORMONE [Suspect]
     Active Substance: PARATHYROID HORMONE
     Indication: HYPOPARATHYROIDISM
     Dosage: 75 MICROGRAM, QD
     Route: 058

REACTIONS (9)
  - Fibromyalgia [Unknown]
  - Furuncle [Unknown]
  - Blister [Unknown]
  - Fine motor skill dysfunction [Unknown]
  - Contusion [Unknown]
  - Spinal stenosis [Unknown]
  - Arthritis [Unknown]
  - Fall [Unknown]
  - Renal impairment [Unknown]

NARRATIVE: CASE EVENT DATE: 20210117
